FAERS Safety Report 16978880 (Version 1)
Quarter: 2019Q4

REPORT INFORMATION
  Report Type: Spontaneous
  Country: US (occurrence: US)
  Receive Date: 20191031
  Receipt Date: 20191031
  Transmission Date: 20200122
  Serious: Yes (Other)
  Sender: FDA-Public Use
  Company Number: US-AMNEAL PHARMACEUTICALS-2019-AMRX-02394

PATIENT
  Age: 44 Year
  Sex: Female
  Weight: 126 kg

DRUGS (14)
  1. ELAGOLIX [Suspect]
     Active Substance: ELAGOLIX
     Indication: UTERINE LEIOMYOMA
     Dosage: 2 DOSAGE FORM, QD
     Route: 048
     Dates: start: 20171108, end: 20180425
  2. ISAGENIX NATURAL ACCELERATOR [Concomitant]
     Indication: PRODUCT USED FOR UNKNOWN INDICATION
     Dosage: 1 DOSAGE FORM, QD
     Route: 048
     Dates: start: 201509
  3. PREDNISONE. [Concomitant]
     Active Substance: PREDNISONE
     Indication: SINUSITIS
     Dosage: 1 DOSAGE FORM, QD
     Route: 048
     Dates: start: 20180118, end: 20180126
  4. THOMAPYRIN N [Concomitant]
     Active Substance: ACETAMINOPHEN\ASPIRIN\CAFFEINE
     Indication: HEADACHE
     Dosage: 565MG AS REQUIRED
     Route: 048
     Dates: start: 20170404
  5. PRENATAL VITAMINS [MINERALS NOS;VITAMINS NOS] [Concomitant]
     Active Substance: MINERALS\VITAMINS
     Indication: SUPPLEMENTATION THERAPY
     Dosage: 1 DOSAGE FORM, QD
     Route: 048
     Dates: start: 20180804
  6. ACTIVELLA [Suspect]
     Active Substance: ESTRADIOL\NORETHINDRONE ACETATE
     Indication: UTERINE LEIOMYOMA
     Dosage: 1 DOSAGE FORM, QD
     Route: 048
     Dates: start: 20171108, end: 20180425
  7. FOLIC ACID. [Concomitant]
     Active Substance: FOLIC ACID
     Indication: SUPPLEMENTATION THERAPY
     Dosage: 1 DOSAGE FORM, QD
     Route: 048
     Dates: start: 20180804
  8. AMOXICILLIN TRIHYDRATE [Concomitant]
     Active Substance: AMOXICILLIN
     Indication: RHINORRHOEA
  9. PREDNISONE. [Concomitant]
     Active Substance: PREDNISONE
     Indication: RHINORRHOEA
  10. AMOXICILLIN TRIHYDRATE [Concomitant]
     Active Substance: AMOXICILLIN
     Indication: SINUSITIS
     Dosage: UNK (875 AMOXICILLIN; 125-CLAVULANIC ACID WITH 0.63MEG POTASSIUM (2 IN 1 D))
     Route: 048
  11. PROBIOTIC 10 [Concomitant]
     Active Substance: DIETARY SUPPLEMENT\PROBIOTICS
     Indication: SINUSITIS
     Dosage: 2 DOSAGE FORM, QD
     Route: 048
     Dates: start: 20180120
  12. PROBIOTIC 10 [Concomitant]
     Active Substance: DIETARY SUPPLEMENT\PROBIOTICS
     Indication: RHINORRHOEA
  13. ALEVE [Concomitant]
     Active Substance: NAPROXEN SODIUM
     Indication: DYSMENORRHOEA
     Dosage: 220MG AS REQUIRED
     Route: 048
     Dates: start: 1995
  14. FERROUS SULFATE. [Concomitant]
     Active Substance: FERROUS SULFATE
     Indication: ANAEMIA
     Dosage: 3 DOSAGE FORM, QD, 975 MG (325 MG,3 IN 1 D)
     Route: 048
     Dates: start: 20170413

REACTIONS (3)
  - Abortion induced [Unknown]
  - Exposure during pregnancy [Unknown]
  - Vaginal haemorrhage [Unknown]

NARRATIVE: CASE EVENT DATE: 20180917
